FAERS Safety Report 9213066 (Version 1)
Quarter: 2013Q2

REPORT INFORMATION
  Report Type: Spontaneous
  Country: US (occurrence: US)
  Receive Date: 20130405
  Receipt Date: 20130405
  Transmission Date: 20140414
  Serious: Yes (Other)
  Sender: FDA-Public Use
  Company Number: US-PFIZER INC-2013103136

PATIENT
  Age: 54 Year
  Sex: Female
  Weight: 79.37 kg

DRUGS (2)
  1. PREMARIN [Suspect]
     Indication: HYSTERECTOMY
     Dosage: 0.3 MG, UNK
     Route: 048
     Dates: end: 20120321
  2. ATORVASTATIN [Concomitant]
     Indication: BLOOD CHOLESTEROL INCREASED
     Dosage: UNK

REACTIONS (4)
  - Thrombosis [Unknown]
  - Withdrawal syndrome [Unknown]
  - Local swelling [Unknown]
  - Hot flush [Unknown]
